FAERS Safety Report 5130829-6 (Version None)
Quarter: 2006Q4

REPORT INFORMATION
  Report Type: 
  Country: None (occurrence: None)
  Receive Date: 20061013
  Receipt Date: 20060930
  Transmission Date: 20070319
  Serious: Yes (Hospitalization, Other)
  Sender: FDA-Public Use
  Company Number: 2006105945

PATIENT
  Age: 80 Year
  Sex: Male
  Weight: 67.1324 kg

DRUGS (1)
  1. LYRICA [Suspect]
     Indication: DIABETIC NEUROPATHY
     Dosage: 150 MG (50 MG, 3 IN  1 D)
     Dates: start: 20060815, end: 20060822

REACTIONS (5)
  - ARTHRITIS [None]
  - BENIGN PROSTATIC HYPERPLASIA [None]
  - GOUT [None]
  - MUSCULAR WEAKNESS [None]
  - PNEUMONITIS [None]
